FAERS Safety Report 5243143-5 (Version None)
Quarter: 2007Q1

REPORT INFORMATION
  Report Type: 
  Country: None (occurrence: None)
  Receive Date: 20070221
  Receipt Date: 20070215
  Transmission Date: 20070707
  Serious: Yes (Hospitalization)
  Sender: FDA-Public Use
  Company Number: US-SHR-US-2007-002340

PATIENT
  Age: 39 Year
  Sex: Male
  Weight: 96.145 kg

DRUGS (2)
  1. MAGNEVIST [Suspect]
     Dosage: 20 ML, 1 DOSE
     Route: 042
     Dates: start: 20070123, end: 20070123
  2. METHADONE HCL [Concomitant]
     Dosage: 20 MG, EVERY 6H

REACTIONS (18)
  - ASTHENIA [None]
  - BLOOD INSULIN INCREASED [None]
  - COLD SWEAT [None]
  - CONVULSION [None]
  - DEPRESSION [None]
  - DIARRHOEA [None]
  - DISORIENTATION [None]
  - DIZZINESS [None]
  - ERYTHEMA [None]
  - FEELING HOT [None]
  - FLUSHING [None]
  - HYPOAESTHESIA FACIAL [None]
  - HYPOGLYCAEMIA [None]
  - MICTURITION URGENCY [None]
  - NAUSEA [None]
  - OCULAR HYPERAEMIA [None]
  - PRURITUS [None]
  - SWELLING FACE [None]
